FAERS Safety Report 4750819-2 (Version None)
Quarter: 2005Q3

REPORT INFORMATION
  Report Type: 
  Country: None (occurrence: None)
  Receive Date: 20050822
  Receipt Date: 20050808
  Transmission Date: 20060218
  Serious: Yes (Other)
  Sender: FDA-Public Use
  Company Number: 200512429BCC

PATIENT
  Age: 35 Year
  Sex: Female
  Weight: 65.7716 kg

DRUGS (1)
  1. BAYER MUSCLE AND JOINT CREAM (CAMPHOR/EUCALYPTUS/MENTHOL/METHYL SALICY [Suspect]
     Indication: NECK PAIN
     Dosage: TOPICAL
     Route: 061
     Dates: start: 20050501

REACTIONS (2)
  - ABORTION SPONTANEOUS [None]
  - DRUG EXPOSURE DURING PREGNANCY [None]
